FAERS Safety Report 8450726-8 (Version None)
Quarter: 2012Q2

REPORT INFORMATION
  Report Type: 
  Country: None (occurrence: None)
  Receive Date: 20120620
  Receipt Date: 20120613
  Transmission Date: 20120825
  Serious: Yes (Hospitalization)
  Sender: FDA-Public Use
  Company Number: SE-PFIZER INC-2012142056

PATIENT
  Age: 91 Year
  Sex: Male

DRUGS (4)
  1. DIGOXIN [Suspect]
     Indication: CARDIAC FAILURE
     Dosage: UNK
     Dates: end: 20120228
  2. CLINDAMYCIN HCL [Suspect]
     Indication: EMPYEMA
     Dosage: UNK
     Route: 048
     Dates: start: 20120401
  3. ENALAPRIL MALEATE [Suspect]
     Indication: CARDIAC FAILURE
     Dosage: UNK
     Dates: end: 20120228
  4. ISOPTIN [Suspect]
     Indication: CARDIAC FAILURE
     Dosage: UNK
     Dates: end: 20120228

REACTIONS (3)
  - ATRIOVENTRICULAR BLOCK [None]
  - PSEUDOMEMBRANOUS COLITIS [None]
  - DRUG LEVEL INCREASED [None]
